FAERS Safety Report 17707630 (Version 1)
Quarter: 2020Q2

REPORT INFORMATION
  Report Type: Spontaneous
  Country: US (occurrence: US)
  Receive Date: 20200424
  Receipt Date: 20200424
  Transmission Date: 20200714
  Serious: No
  Sender: FDA-Public Use
  Company Number: US-SILVERGATE PHARMACEUTICALS, INC.-2020SIL00007

PATIENT
  Age: 3 Year
  Sex: Male

DRUGS (1)
  1. KATERZIA [Suspect]
     Active Substance: AMLODIPINE BENZOATE
     Indication: ESSENTIAL HYPERTENSION

REACTIONS (3)
  - Initial insomnia [Unknown]
  - Poor quality sleep [Unknown]
  - Product use issue [Unknown]
